FAERS Safety Report 20097945 (Version 1)
Quarter: 2021Q4

REPORT INFORMATION
  Report Type: Spontaneous
  Country: CN (occurrence: CN)
  Receive Date: 20211122
  Receipt Date: 20211122
  Transmission Date: 20220303
  Serious: Yes (Hospitalization)
  Sender: FDA-Public Use
  Company Number: CN-002147023-NVSC2021CN259458

PATIENT

DRUGS (1)
  1. RUXOLITINIB [Suspect]
     Active Substance: RUXOLITINIB
     Indication: Myelofibrosis
     Dosage: 10 MG, BID
     Route: 048
     Dates: start: 20210105, end: 20210917

REACTIONS (3)
  - Infection [Recovering/Resolving]
  - Myelosuppression [Recovering/Resolving]
  - Depressed level of consciousness [Unknown]

NARRATIVE: CASE EVENT DATE: 20210917
